FAERS Safety Report 9214352 (Version 5)
Quarter: 2013Q3

REPORT INFORMATION
  Report Type: Spontaneous
  Country: US (occurrence: US)
  Receive Date: 20130405
  Receipt Date: 20130703
  Transmission Date: 20140515
  Serious: Yes (Hospitalization, Disabling, Other)
  Sender: FDA-Public Use
  Company Number: US-JNJFOC-20130317513

PATIENT
  Age: 71 Year
  Sex: Female

DRUGS (5)
  1. XARELTO [Suspect]
     Indication: CEREBROVASCULAR ACCIDENT PROPHYLAXIS
     Route: 048
  2. XARELTO [Suspect]
     Indication: ATRIAL FIBRILLATION
     Route: 048
  3. ZYPREXA [Concomitant]
     Route: 048
     Dates: start: 20130110
  4. GLUCOPHAGE [Concomitant]
     Indication: TYPE 2 DIABETES MELLITUS
     Route: 048
     Dates: start: 20130110
  5. ATENOLOL [Concomitant]
     Route: 048
     Dates: start: 20090824

REACTIONS (3)
  - Haemorrhagic stroke [Unknown]
  - Diarrhoea [Recovered/Resolved]
  - Dehydration [Unknown]
